FAERS Safety Report 7678186-5 (Version None)
Quarter: 2011Q3

REPORT INFORMATION
  Report Type: 
  Country: None (occurrence: None)
  Receive Date: 20110811
  Receipt Date: 20090331
  Transmission Date: 20111222
  Serious: Yes (Other)
  Sender: FDA-Public Use
  Company Number: US-BAYER-200920263NA

PATIENT
  Age: 41 Year
  Sex: Female
  Weight: 71.818 kg

DRUGS (23)
  1. LOTEMAX [Concomitant]
  2. ALBUTEROL SULFATE AUTOHALER [Concomitant]
  3. WARFARIN [Concomitant]
  4. COZAAR [Concomitant]
  5. NORVASC [Concomitant]
  6. CLONIDINE [Concomitant]
  7. DILANTIN [Concomitant]
  8. GADOLINIUM IN UNSPECIFIED DRUG [Suspect]
     Indication: IMAGING PROCEDURE
     Dosage: UNK UNK, ONCE
     Dates: start: 20070223, end: 20070223
  9. PHOSLO [Concomitant]
  10. LOPRESSOR [Concomitant]
  11. SENSIPAR [Concomitant]
  12. GENTAMYCIN SULFATE [Concomitant]
  13. CARTIA XT [Concomitant]
  14. DIOVAN [Concomitant]
  15. ATROVENT [Concomitant]
  16. ADVAIR DISKUS 100/50 [Concomitant]
  17. MAGNEVIST [Suspect]
     Indication: ANGIOGRAM
     Route: 042
     Dates: start: 20070223, end: 20070223
  18. RENAGEL [Concomitant]
     Dosage: WITH MEALS
  19. LEVAQUIN [Concomitant]
  20. EPOGEN [Concomitant]
  21. MAGNEVIST [Suspect]
     Indication: NUCLEAR MAGNETIC RESONANCE IMAGING BRAIN
  22. GADOLINIUM IN UNSPECIFIED DRUG [Suspect]
     Indication: NUCLEAR MAGNETIC RESONANCE IMAGING BRAIN
     Dosage: 20 ML, ONCE
     Route: 042
     Dates: start: 20070607, end: 20070607
  23. OPTIMARK [Suspect]
     Indication: NUCLEAR MAGNETIC RESONANCE IMAGING BRAIN

REACTIONS (20)
  - NEPHROGENIC SYSTEMIC FIBROSIS [None]
  - MUSCLE RIGIDITY [None]
  - MUSCLE TIGHTNESS [None]
  - SCLERODACTYLIA [None]
  - ASTHENIA [None]
  - JOINT STIFFNESS [None]
  - MUSCLE ATROPHY [None]
  - SLEEP DISORDER [None]
  - EYE INFLAMMATION [None]
  - JOINT RANGE OF MOTION DECREASED [None]
  - GRIP STRENGTH DECREASED [None]
  - MUSCULOSKELETAL STIFFNESS [None]
  - ARTHRALGIA [None]
  - MOBILITY DECREASED [None]
  - SCLERITIS [None]
  - PAIN [None]
  - MORPHOEA [None]
  - JOINT CONTRACTURE [None]
  - SKIN INDURATION [None]
  - ABASIA [None]
